FAERS Safety Report 24450282 (Version 1)
Quarter: 2024Q4

REPORT INFORMATION
  Report Type: Report from Study
  Country: CL (occurrence: CL)
  Receive Date: 20241017
  Receipt Date: 20241017
  Transmission Date: 20250114
  Serious: Yes (Other)
  Sender: JOHNSON AND JOHNSON
  Company Number: CL-JNJFOC-20240108614

PATIENT
  Age: 75 Year
  Sex: Female

DRUGS (4)
  1. SIMPONI [Suspect]
     Active Substance: GOLIMUMAB
     Indication: Rheumatoid arthritis
     Dosage: LAST DRUG APPLICATION: 2-FEB-2024.
     Route: 058
     Dates: start: 20230724
  2. SIMPONI [Suspect]
     Active Substance: GOLIMUMAB
     Route: 058
     Dates: start: 20230724
  3. SIMPONI [Suspect]
     Active Substance: GOLIMUMAB
     Route: 058
     Dates: start: 20230724
  4. METFORMIN [Concomitant]
     Active Substance: METFORMIN HYDROCHLORIDE
     Indication: Diabetes mellitus

REACTIONS (13)
  - Glaucoma [Unknown]
  - Rheumatoid arthritis [Unknown]
  - Hypertension [Unknown]
  - Bacterial infection [Unknown]
  - Lymphadenopathy [Unknown]
  - Exostosis [Not Recovered/Not Resolved]
  - Wound [Not Recovered/Not Resolved]
  - Immune system disorder [Unknown]
  - Eye allergy [Unknown]
  - Acne [Unknown]
  - Osteoarthritis [Not Recovered/Not Resolved]
  - Emotional disorder [Unknown]
  - Hypersensitivity [Not Recovered/Not Resolved]

NARRATIVE: CASE EVENT DATE: 20240801
